FAERS Safety Report 4433263-7 (Version None)
Quarter: 2004Q3

REPORT INFORMATION
  Report Type: 
  Country: None (occurrence: None)
  Receive Date: 20040824
  Receipt Date: 20040806
  Transmission Date: 20050211
  Serious: Yes (Other)
  Sender: FDA-Public Use
  Company Number: B0342407A

PATIENT
  Age: 23 Year
  Sex: Female

DRUGS (3)
  1. EPIVIR [Suspect]
  2. RETROVIR [Suspect]
  3. STAVUDINE (FORMULATION UNKNOWN) (STAVUDINE) [Suspect]

REACTIONS (12)
  - ABDOMINAL PAIN [None]
  - ASTHENIA [None]
  - CARDIOMYOPATHY [None]
  - HEPATIC STEATOSIS [None]
  - LACTIC ACIDOSIS [None]
  - MUSCULAR WEAKNESS [None]
  - NAUSEA [None]
  - NEUROMYOPATHY [None]
  - NEUROPATHY PERIPHERAL [None]
  - PAIN [None]
  - PARAESTHESIA [None]
  - VOMITING [None]
